FAERS Safety Report 9280149 (Version 3)
Quarter: 2013Q2

REPORT INFORMATION
  Report Type: Report from Study
  Country: US (occurrence: US)
  Receive Date: 20130509
  Receipt Date: 20130528
  Transmission Date: 20140414
  Serious: Yes (Hospitalization)
  Sender: FDA-Public Use
  Company Number: US-JNJFOC-20130500226

PATIENT
  Age: 13 Year
  Sex: Male
  Weight: 32.8 kg

DRUGS (5)
  1. REMICADE [Suspect]
     Indication: INFLAMMATORY BOWEL DISEASE
     Route: 042
     Dates: start: 20110817, end: 20110817
  2. REMICADE [Suspect]
     Indication: INFLAMMATORY BOWEL DISEASE
     Route: 042
     Dates: start: 20110420
  3. HUMIRA [Concomitant]
     Route: 065
     Dates: start: 20120909
  4. HUMIRA [Concomitant]
     Route: 065
     Dates: start: 20120720
  5. TACROLIMUS [Concomitant]
     Route: 065

REACTIONS (1)
  - Crohn^s disease [Recovered/Resolved]
